FAERS Safety Report 17597050 (Version 6)
Quarter: 2024Q1

REPORT INFORMATION
  Report Type: Report from Study
  Country: CA (occurrence: None)
  Receive Date: 20200330
  Receipt Date: 20240222
  Transmission Date: 20240410
  Serious: Yes (Other)
  Sender: FDA-Public Use
  Company Number: CA-ORION CORPORATION ORION PHARMA-TREX2020-1583

PATIENT
  Age: 26 Year
  Sex: Male
  Weight: 176 kg

DRUGS (21)
  1. METHOTREXATE [Suspect]
     Active Substance: METHOTREXATE
     Indication: Product used for unknown indication
  2. AZATHIOPRINE [Suspect]
     Active Substance: AZATHIOPRINE
     Indication: Product used for unknown indication
  3. RITUXIMAB [Suspect]
     Active Substance: RITUXIMAB
     Indication: Vasculitis
  4. RITUXIMAB [Suspect]
     Active Substance: RITUXIMAB
     Indication: Granulomatosis with polyangiitis
  5. RITUXIMAB [Suspect]
     Active Substance: RITUXIMAB
  6. RITUXIMAB [Suspect]
     Active Substance: RITUXIMAB
  7. RITUXIMAB [Suspect]
     Active Substance: RITUXIMAB
  8. RITUXIMAB [Suspect]
     Active Substance: RITUXIMAB
  9. RITUXIMAB [Suspect]
     Active Substance: RITUXIMAB
  10. RITUXIMAB [Suspect]
     Active Substance: RITUXIMAB
  11. RITUXIMAB [Suspect]
     Active Substance: RITUXIMAB
  12. ACETAMINOPHEN [Concomitant]
     Active Substance: ACETAMINOPHEN
     Indication: Premedication
  13. BENADRYL [Concomitant]
     Active Substance: DIPHENHYDRAMINE HYDROCHLORIDE
  14. DIPHENHYDRAMINE [Concomitant]
     Active Substance: DIPHENHYDRAMINE
     Indication: Premedication
  15. EFFEXOR [Concomitant]
     Active Substance: VENLAFAXINE HYDROCHLORIDE
  16. METHYLPREDNISOLONE [Concomitant]
     Active Substance: METHYLPREDNISOLONE
     Indication: Premedication
  17. PREDNISONE [Concomitant]
     Active Substance: PREDNISONE
     Indication: Oropharyngeal pain
  18. PREDNISONE [Concomitant]
     Active Substance: PREDNISONE
  19. VENLAFAXINE HYDROCHLORIDE [Concomitant]
     Active Substance: VENLAFAXINE HYDROCHLORIDE
     Indication: Depression
  20. INDOMETHACIN [Concomitant]
     Active Substance: INDOMETHACIN
     Indication: Gout
  21. FINASTERIDE [Concomitant]
     Active Substance: FINASTERIDE
     Indication: Alopecia

REACTIONS (24)
  - Off label use [Recovered/Resolved]
  - Alanine aminotransferase increased [Recovered/Resolved]
  - Blood pressure increased [Recovered/Resolved]
  - Bronchiectasis [Recovered/Resolved]
  - C-reactive protein increased [Recovered/Resolved]
  - Cough [Recovered/Resolved]
  - Ear disorder [Recovered/Resolved]
  - Granulomatosis with polyangiitis [Recovered/Resolved]
  - Heart rate increased [Recovered/Resolved]
  - Investigation abnormal [Recovered/Resolved]
  - Lung disorder [Recovered/Resolved]
  - Nodule [Recovered/Resolved]
  - Oxygen saturation decreased [Recovered/Resolved]
  - Productive cough [Recovered/Resolved]
  - Pulmonary cavitation [Recovered/Resolved]
  - Sinus pain [Recovered/Resolved]
  - Skin ulcer [Recovered/Resolved]
  - Vasculitis [Recovered/Resolved]
  - Weight decreased [Recovered/Resolved]
  - Weight increased [Recovered/Resolved]
  - Blood pressure diastolic abnormal [Recovered/Resolved]
  - Oropharyngeal pain [Recovered/Resolved]
  - Blood pressure systolic increased [Recovered/Resolved]
  - Poor venous access [Recovered/Resolved]
